FAERS Safety Report 10786502 (Version 1)
Quarter: 2015Q1

REPORT INFORMATION
  Report Type: Spontaneous
  Country: PK (occurrence: None)
  Receive Date: 20150210
  Receipt Date: 20150210
  Transmission Date: 20150721
  Serious: Yes (Hospitalization)
  Sender: FDA-Public Use
  Company Number: None

PATIENT
  Age: 27 Year
  Sex: Male
  Weight: 65 kg

DRUGS (2)
  1. AZITHROMYCIN [Suspect]
     Active Substance: AZITHROMYCIN ANHYDROUS
     Indication: OROPHARYNGEAL PAIN
     Dosage: 2 PILLS
     Route: 048
     Dates: start: 20150131, end: 20150204
  2. AZITHROMYCIN [Suspect]
     Active Substance: AZITHROMYCIN ANHYDROUS
     Indication: PHARYNGITIS
     Dosage: 2 PILLS
     Route: 048
     Dates: start: 20150131, end: 20150204

REACTIONS (2)
  - Chest discomfort [None]
  - Sinus tachycardia [None]

NARRATIVE: CASE EVENT DATE: 20150208
